FAERS Safety Report 10184697 (Version 1)
Quarter: 2014Q2

REPORT INFORMATION
  Report Type: Spontaneous
  Country: FR (occurrence: FR)
  Receive Date: 20140521
  Receipt Date: 20140521
  Transmission Date: 20141212
  Serious: Yes (Hospitalization)
  Sender: FDA-Public Use
  Company Number: FR-JNJFOC-20140508507

PATIENT
  Age: 72 Year
  Sex: Male

DRUGS (14)
  1. XARELTO [Suspect]
     Indication: CEREBROVASCULAR ACCIDENT PROPHYLAXIS
     Route: 048
  2. XARELTO [Suspect]
     Indication: ATRIAL FIBRILLATION
     Route: 048
  3. COUMADINE [Suspect]
     Indication: PRODUCT USED FOR UNKNOWN INDICATION
     Route: 048
  4. PRADAXA [Suspect]
     Indication: ATRIAL FIBRILLATION
     Route: 048
  5. PARACETAMOL [Concomitant]
     Route: 065
  6. PERINDOPRIL [Concomitant]
     Route: 065
  7. GLUCOSAMINE [Concomitant]
     Route: 065
  8. PERMIXON [Concomitant]
     Route: 065
  9. ZYLORIC [Concomitant]
     Route: 065
  10. VALSARTAN [Concomitant]
     Route: 065
  11. ESIDREX [Concomitant]
     Route: 065
  12. ATENOLOL [Concomitant]
     Route: 065
  13. KARDEGIC [Concomitant]
     Route: 065
  14. ALDOMET [Concomitant]
     Route: 065

REACTIONS (2)
  - Hypersensitivity [Recovered/Resolved]
  - Rash [Recovered/Resolved]
